FAERS Safety Report 8026765-8 (Version None)
Quarter: 2012Q1

REPORT INFORMATION
  Report Type: 
  Country: None (occurrence: None)
  Receive Date: 20120106
  Receipt Date: 20111229
  Transmission Date: 20120608
  Serious: No
  Sender: FDA-Public Use
  Company Number: US-BIOGENIDEC-2011BI048970

PATIENT
  Age: 22 Year
  Sex: Male

DRUGS (3)
  1. AVONEX [Suspect]
     Indication: MULTIPLE SCLEROSIS
     Route: 030
     Dates: start: 20111202
  2. AVONEX [Suspect]
     Route: 030
     Dates: start: 20030801, end: 20110507
  3. AVONEX [Suspect]
     Route: 030
     Dates: start: 19980401, end: 20030801

REACTIONS (1)
  - INJECTION SITE HAEMORRHAGE [None]
